FAERS Safety Report 24568739 (Version 2)
Quarter: 2025Q2

REPORT INFORMATION
  Report Type: Spontaneous
  Country: US (occurrence: US)
  Receive Date: 20241031
  Receipt Date: 20250521
  Transmission Date: 20250717
  Serious: No
  Sender: ROCHE
  Company Number: US-ROCHE-10000119615

PATIENT
  Age: 71 Year
  Sex: Male

DRUGS (6)
  1. TOCILIZUMAB [Suspect]
     Active Substance: TOCILIZUMAB
     Indication: VEXAS syndrome
     Route: 042
  2. TOCILIZUMAB [Suspect]
     Active Substance: TOCILIZUMAB
     Route: 042
  3. METHYLPREDNISOLONE [Concomitant]
     Active Substance: METHYLPREDNISOLONE
     Route: 042
  4. PREDNISONE [Concomitant]
     Active Substance: PREDNISONE
     Route: 048
  5. SILTUXIMAB [Concomitant]
     Active Substance: SILTUXIMAB
     Dosage: THEN EVERY 6 WEEKS IV THEREAFTER
     Route: 042
  6. SILTUXIMAB [Concomitant]
     Active Substance: SILTUXIMAB
     Dosage: 11 MG/KG EVERY 3 WEEKS IV FOR 4 DOSES
     Route: 042

REACTIONS (2)
  - Off label use [Unknown]
  - No adverse event [Unknown]
